FAERS Safety Report 8434559-4 (Version None)
Quarter: 2012Q2

REPORT INFORMATION
  Report Type: 
  Country: None (occurrence: None)
  Receive Date: 20120614
  Receipt Date: 20120608
  Transmission Date: 20120825
  Serious: No
  Sender: FDA-Public Use
  Company Number: US-BIOGENIDEC-2012BI020346

PATIENT
  Age: 63 Year
  Sex: Female

DRUGS (3)
  1. AMPYRA [Concomitant]
  2. AVONEX [Concomitant]
     Indication: MULTIPLE SCLEROSIS
     Route: 030
     Dates: start: 19980710
  3. TYSABRI [Suspect]
     Indication: MULTIPLE SCLEROSIS
     Route: 042
     Dates: start: 20120213

REACTIONS (5)
  - FEELING ABNORMAL [None]
  - POOR VENOUS ACCESS [None]
  - HEADACHE [None]
  - DIZZINESS [None]
  - JOINT STIFFNESS [None]
